FAERS Safety Report 4690471-8 (Version None)
Quarter: 2005Q2

REPORT INFORMATION
  Report Type: 
  Country: None (occurrence: None)
  Receive Date: 20050614
  Receipt Date: 20050614
  Transmission Date: 20051028
  Serious: Yes (Life-Threatening)
  Sender: FDA-Public Use
  Company Number: None

PATIENT
  Age: 70 Year
  Sex: Male
  Weight: 89.8122 kg

DRUGS (16)
  1. GATIFLOXACIN [Suspect]
     Indication: PROSTATITIS
     Dosage: 400MG  TWICE DAILY ORAL
     Route: 048
     Dates: start: 20050421, end: 20050424
  2. GLYBURIDE [Concomitant]
  3. ALLOPURINOL [Concomitant]
  4. AMITRIPTYLINE HCL [Concomitant]
  5. ASPIRIN [Concomitant]
  6. ATENOLOL [Concomitant]
  7. FINASTERIDE [Concomitant]
  8. FUROSEMIDE [Concomitant]
  9. GEMFIBROZIL [Concomitant]
  10. LEVOTHYROXINE SODIUM [Concomitant]
  11. LISINOPRIL [Concomitant]
  12. PENTOSAN POLYSULFATE NA [Concomitant]
  13. POTASSIUM CL [Concomitant]
  14. PRIMIDONE [Concomitant]
  15. SILDENAFIL CITRATE [Concomitant]
  16. TERAZOSIN HCL [Concomitant]

REACTIONS (3)
  - BLOOD GLUCOSE INCREASED [None]
  - NOCTURIA [None]
  - POLYDIPSIA [None]
